FAERS Safety Report 6210165-7 (Version None)
Quarter: 2009Q2

REPORT INFORMATION
  Report Type: 
  Country: None (occurrence: None)
  Receive Date: 20090601
  Receipt Date: 20090527
  Transmission Date: 20091009
  Serious: Yes (Hospitalization)
  Sender: FDA-Public Use
  Company Number: DE-BIOGENIDEC-2009BI016112

PATIENT
  Age: 29 Year
  Sex: Female
  Weight: 45 kg

DRUGS (3)
  1. AVONEX [Suspect]
     Indication: RELAPSING-REMITTING MULTIPLE SCLEROSIS
     Route: 030
     Dates: start: 20010101
  2. IBUPROFEN [Concomitant]
     Indication: PROPHYLAXIS
     Dates: start: 20050101
  3. UNKNOWN [Concomitant]
     Indication: CONTRACEPTION
     Dates: start: 19960101

REACTIONS (5)
  - CHILLS [None]
  - HEADACHE [None]
  - HYPOAESTHESIA [None]
  - TONGUE PARALYSIS [None]
  - VOMITING [None]
